FAERS Safety Report 7271889-6 (Version None)
Quarter: 2011Q1

REPORT INFORMATION
  Report Type: 
  Country: None (occurrence: None)
  Receive Date: 20110203
  Receipt Date: 20110127
  Transmission Date: 20110831
  Serious: Yes (Other)
  Sender: FDA-Public Use
  Company Number: US-JNJFOC-20110108062

PATIENT
  Sex: Female

DRUGS (3)
  1. TOPAMAX [Suspect]
     Indication: CONVULSION
     Route: 048
  2. FLEXERIL [Suspect]
     Indication: MUSCLE SPASMS
     Route: 065
  3. LEVAQUIN [Suspect]
     Indication: PRODUCT USED FOR UNKNOWN INDICATION
     Route: 065

REACTIONS (7)
  - DISORIENTATION [None]
  - ADVERSE EVENT [None]
  - HALLUCINATION, VISUAL [None]
  - DECREASED APPETITE [None]
  - SLUGGISHNESS [None]
  - ALOPECIA [None]
  - LETHARGY [None]
